FAERS Safety Report 15976019 (Version 1)
Quarter: 2019Q1

REPORT INFORMATION
  Report Type: Spontaneous
  Country: ES (occurrence: ES)
  Receive Date: 20190218
  Receipt Date: 20190218
  Transmission Date: 20190418
  Serious: Yes (Hospitalization)
  Sender: FDA-Public Use
  Company Number: ES-MYLANLABS-2019M1013012

PATIENT
  Age: 31 Year
  Sex: Female

DRUGS (7)
  1. TIZANIDINE. [Interacting]
     Active Substance: TIZANIDINE
     Dosage: UPON RE-INITIATION
     Route: 065
  2. TIZANIDINE. [Interacting]
     Active Substance: TIZANIDINE
     Dosage: UPON RE-INITIATION
     Route: 065
  3. DIAZEPAM. [Interacting]
     Active Substance: DIAZEPAM
     Indication: MIXED ANXIETY AND DEPRESSIVE DISORDER
     Dosage: 2.5 MILLIGRAM, Q8H
     Route: 065
  4. TIZANIDINE. [Suspect]
     Active Substance: TIZANIDINE
     Indication: MUSCLE CONTRACTURE
     Dosage: SCHEDULED TO BE ADMINISTERED AT THIS DOSE (6MG/DAY) FOR A MONTH
     Route: 065
  5. SERTRALINE [Interacting]
     Active Substance: SERTRALINE HYDROCHLORIDE
     Indication: MIXED ANXIETY AND DEPRESSIVE DISORDER
     Dosage: 100 MILLIGRAM
     Route: 065
  6. TIZANIDINE. [Interacting]
     Active Substance: TIZANIDINE
     Dosage: DOSAGE MODIFICATION ON OWN ACCORD
     Route: 065
  7. TIZANIDINE. [Interacting]
     Active Substance: TIZANIDINE
     Dosage: UPON RE-INITIATION
     Route: 065

REACTIONS (15)
  - Haemodynamic instability [Recovered/Resolved]
  - Tachycardia [Recovered/Resolved]
  - Drug withdrawal syndrome [Recovering/Resolving]
  - Hyperthermia [Recovering/Resolving]
  - Sinus tachycardia [Recovered/Resolved]
  - Vomiting [Recovering/Resolving]
  - Sympathomimetic effect [Recovering/Resolving]
  - Drug interaction [Recovering/Resolving]
  - Intentional product misuse [Recovering/Resolving]
  - Nausea [Recovering/Resolving]
  - Tachypnoea [Recovering/Resolving]
  - Anxiety [Recovering/Resolving]
  - Tremor [Recovered/Resolved]
  - Hypertension [Not Recovered/Not Resolved]
  - Agitation [Recovering/Resolving]
